FAERS Safety Report 7166226-1 (Version None)
Quarter: 2010Q4

REPORT INFORMATION
  Report Type: 
  Country: None (occurrence: None)
  Receive Date: 20101202
  Receipt Date: 20101119
  Transmission Date: 20110411
  Serious: Yes (Hospitalization)
  Sender: FDA-Public Use
  Company Number: 018472

PATIENT
  Sex: Female

DRUGS (16)
  1. CIMZIA [Suspect]
     Indication: RHEUMATOID ARTHRITIS
     Dosage: (400 MG 1X/4 WEEKS SUBCUTANEOUS)
     Route: 058
     Dates: start: 20100204, end: 20100819
  2. FAMOTIDINE [Concomitant]
  3. PREDNISOLONE [Concomitant]
  4. REBAMIPIDE [Concomitant]
  5. DICLOFENAC SODIUM [Concomitant]
  6. SALAZOSULFAPYRIDINE [Concomitant]
  7. ALENDRONATE SODIUM [Concomitant]
  8. ELCATONIN [Concomitant]
  9. HEPARIN [Concomitant]
  10. DEXAMETHASONE DIPROPIONATE [Concomitant]
  11. LEVOMENTHOL [Concomitant]
  12. FEXOFENADINE HCL [Concomitant]
  13. AROTINOLOL HYDROCHLORIDE [Concomitant]
  14. CANDESARTAN CILEXETIL [Concomitant]
  15. INDOMETACIN [Concomitant]
  16. BETAMETHASONE VALERATE [Concomitant]

REACTIONS (4)
  - CONSTIPATION [None]
  - DIFFUSE LARGE B-CELL LYMPHOMA STAGE III [None]
  - GASTRIC ULCER HAEMORRHAGE [None]
  - NON-HODGKIN'S LYMPHOMA [None]
